FAERS Safety Report 7629229-6 (Version None)
Quarter: 2011Q3

REPORT INFORMATION
  Report Type: 
  Country: None (occurrence: None)
  Receive Date: 20110715
  Receipt Date: 20110706
  Transmission Date: 20111222
  Serious: Yes (Hospitalization)
  Sender: FDA-Public Use
  Company Number: 2011S1000993

PATIENT
  Age: 58 Year
  Sex: Female

DRUGS (7)
  1. LASIX [Concomitant]
  2. NIKORANMART [Concomitant]
  3. ADVAIR DISKUS 100/50 [Concomitant]
  4. CLARITHROMYCIN [Concomitant]
  5. ZOLPIDEM [Concomitant]
  6. LIVALO [Suspect]
     Indication: HYPERCHOLESTEROLAEMIA
     Dosage: 2 MG, 1X, PO
     Route: 048
     Dates: start: 20110603, end: 20110706
  7. UNISIA [Concomitant]

REACTIONS (2)
  - MALAISE [None]
  - RHABDOMYOLYSIS [None]
